FAERS Safety Report 4886049-3 (Version None)
Quarter: 2006Q1

REPORT INFORMATION
  Report Type: 
  Country: None (occurrence: None)
  Receive Date: 20060117
  Receipt Date: 20060106
  Transmission Date: 20060701
  Serious: Yes (Other)
  Sender: FDA-Public Use
  Company Number: BR-2005-018931

PATIENT
  Age: 62 Year
  Sex: Female

DRUGS (3)
  1. MIRENA [Suspect]
     Indication: HORMONE REPLACEMENT THERAPY
     Dosage: 20 UG/DAY, CONT INTRA-UTERINE
     Route: 015
     Dates: start: 20040501, end: 20050901
  2. ESTROGENS SOL/INJ [Suspect]
     Indication: HORMONE REPLACEMENT THERAPY
     Dosage: ORAL
     Route: 048
  3. FLUOXETINE [Concomitant]

REACTIONS (1)
  - BREAST CANCER FEMALE [None]
